FAERS Safety Report 4342003-1 (Version None)
Quarter: 2004Q1

REPORT INFORMATION
  Report Type: 
  Country: None (occurrence: None)
  Receive Date: 20040329
  Receipt Date: 20040105
  Transmission Date: 20041129
  Serious: No
  Sender: FDA-Public Use
  Company Number: 04P-163-0246263-00

PATIENT
  Age: 33 Year
  Sex: Male

DRUGS (5)
  1. HUMIRA [Suspect]
     Indication: ANKYLOSING SPONDYLITIS
     Dosage: 40 MG, 1 IN 1 WK, SUBCUTANEOUS
     Route: 058
     Dates: start: 20031201
  2. MESALAZINE [Concomitant]
  3. METRONIDAZOLE [Concomitant]
  4. FENTANYL [Concomitant]
  5. ZONISAMIDE [Concomitant]

REACTIONS (1)
  - INJECTION SITE BURNING [None]
